FAERS Safety Report 20009915 (Version 3)
Quarter: 2021Q4

REPORT INFORMATION
  Report Type: Spontaneous
  Country: DE (occurrence: DE)
  Receive Date: 20211028
  Receipt Date: 20211124
  Transmission Date: 20220303
  Serious: Yes (Other)
  Sender: FDA-Public Use
  Company Number: DE-AMERICAN REGENT INC-2021002783

PATIENT
  Age: 45 Year
  Sex: Female

DRUGS (2)
  1. FERINJECT [Suspect]
     Active Substance: FERRIC CARBOXYMALTOSE
     Indication: Blood iron decreased
     Dosage: 1X1 (1 DOSAGE FORMS, 1 IN 1 D)
     Dates: start: 2019
  2. IMBRUVICA [Suspect]
     Active Substance: IBRUTINIB
     Indication: Product used for unknown indication
     Dosage: 1X1 (420 MG, 1 IN 1 D)
     Route: 065
     Dates: start: 2016

REACTIONS (4)
  - Hydrocephalus [Unknown]
  - Heavy menstrual bleeding [Unknown]
  - Peripheral swelling [Unknown]
  - Blood pressure increased [Recovered/Resolved]
